FAERS Safety Report 17442667 (Version 1)
Quarter: 2020Q1

REPORT INFORMATION
  Report Type: Spontaneous
  Country: US (occurrence: US)
  Receive Date: 20190923
  Receipt Date: 20190923
  Transmission Date: 20200409
  Serious: No
  Sender: FDA-Public Use
  Company Number: None

PATIENT
  Age: 24 Year
  Sex: Female

DRUGS (16)
  1. VITAMIN D3 [Concomitant]
     Active Substance: CHOLECALCIFEROL
  2. MARIJUANA VAPE [Suspect]
     Active Substance: CANNABIS SATIVA SUBSP. INDICA TOP\DEVICE
  3. LAMICTAL [Concomitant]
     Active Substance: LAMOTRIGINE
  4. FLEXERIL [Concomitant]
     Active Substance: CYCLOBENZAPRINE HYDROCHLORIDE
  5. CLONAZEPAM. [Concomitant]
     Active Substance: CLONAZEPAM
  6. WELLBUTRIN [Concomitant]
     Active Substance: BUPROPION HYDROCHLORIDE
  7. AMITRPTYLINE [Concomitant]
  8. BENADRYL [Concomitant]
     Active Substance: DIPHENHYDRAMINE HYDROCHLORIDE
  9. DONNATOL [Concomitant]
  10. ONDANSETRON [Concomitant]
     Active Substance: ONDANSETRON
  11. ADDERALL [Concomitant]
     Active Substance: AMPHETAMINE ASPARTATE\AMPHETAMINE SULFATE\DEXTROAMPHETAMINE SACCHARATE\DEXTROAMPHETAMINE SULFATE
  12. COMPAZINE [Concomitant]
     Active Substance: PROCHLORPERAZINE MALEATE
  13. VITMIN FERROUS SULFATE [Concomitant]
  14. ZYRTEC [Concomitant]
     Active Substance: CETIRIZINE HYDROCHLORIDE
  15. LOPERAMIDE [Concomitant]
     Active Substance: LOPERAMIDE
  16. BENTYL [Concomitant]
     Active Substance: DICYCLOMINE HYDROCHLORIDE

REACTIONS (4)
  - Substance use [None]
  - Pneumonia [None]
  - Bronchitis [None]
  - Drug ineffective [None]
